FAERS Safety Report 22219974 (Version 1)
Quarter: 2023Q2

REPORT INFORMATION
  Report Type: Spontaneous
  Country: FR (occurrence: None)
  Receive Date: 20230414
  Receipt Date: 20230414
  Transmission Date: 20230721
  Serious: Yes (Disabling)
  Sender: FDA-Public Use
  Company Number: None

PATIENT
  Age: 46 Year
  Sex: Female
  Weight: 65 kg

DRUGS (1)
  1. MIRENA [Suspect]
     Active Substance: LEVONORGESTREL
     Dates: start: 20190130, end: 20221216

REACTIONS (5)
  - Complication associated with device [None]
  - Gait disturbance [None]
  - Osteoarthritis [None]
  - Poor quality sleep [None]
  - Impaired quality of life [None]

NARRATIVE: CASE EVENT DATE: 20200130
